FAERS Safety Report 6273483-2 (Version None)
Quarter: 2009Q3

REPORT INFORMATION
  Report Type: 
  Country: None (occurrence: None)
  Receive Date: 20090716
  Receipt Date: 20090708
  Transmission Date: 20100115
  Serious: Yes (Life-Threatening, Hospitalization)
  Sender: FDA-Public Use
  Company Number: 2009-2003341-NL

PATIENT
  Age: 79 Year
  Sex: Female

DRUGS (3)
  1. DANAPAROID SODIUM [Suspect]
     Dosage: DF
     Dates: end: 20081010
  2. VANCOMYCIN [Suspect]
     Indication: MENINGISM
     Dosage: DF
     Route: 042
     Dates: start: 20080926, end: 20081013
  3. FOSFOMYCIN [Suspect]
     Indication: MENINGISM
     Dosage: DF
     Route: 042
     Dates: start: 20080926, end: 20081013

REACTIONS (7)
  - EOSINOPHILIA [None]
  - NAUSEA [None]
  - PRURITUS [None]
  - PURULENT DISCHARGE [None]
  - PYREXIA [None]
  - RASH MACULO-PAPULAR [None]
  - STAPHYLOCOCCAL INFECTION [None]
